FAERS Safety Report 15656080 (Version 2)
Quarter: 2020Q2

REPORT INFORMATION
  Report Type: Spontaneous
  Country: KR (occurrence: KR)
  Receive Date: 20181126
  Receipt Date: 20200616
  Transmission Date: 20200713
  Serious: Yes (Hospitalization, Other)
  Sender: FDA-Public Use
  Company Number: KR-GLAXOSMITHKLINE-KR2018213037

PATIENT
  Age: 25 Year
  Sex: Male

DRUGS (1)
  1. DUTASTERIDE. [Suspect]
     Active Substance: DUTASTERIDE
     Indication: ALOPECIA
     Dosage: 0.5 MG, EVERY OTHER DAY
     Route: 065

REACTIONS (9)
  - Headache [Recovered/Resolved]
  - Transverse sinus thrombosis [Recovered/Resolved]
  - Papilloedema [Recovered/Resolved]
  - Jugular vein thrombosis [Recovered/Resolved]
  - Diplopia [Recovered/Resolved]
  - Cerebral venous thrombosis [Recovered/Resolved]
  - Dizziness [Recovered/Resolved]
  - Retinal haemorrhage [Recovered/Resolved]
  - Intracranial pressure increased [Recovered/Resolved]
